FAERS Safety Report 24204646 (Version 3)
Quarter: 2024Q4

REPORT INFORMATION
  Report Type: Spontaneous
  Country: US (occurrence: US)
  Receive Date: 20240813
  Receipt Date: 20241202
  Transmission Date: 20250115
  Serious: No
  Sender: PFIZER
  Company Number: US-PFIZER INC-202300058254

PATIENT
  Age: 73 Year
  Sex: Male

DRUGS (3)
  1. VYNDAMAX [Suspect]
     Active Substance: TAFAMIDIS
     Indication: Cardiac amyloidosis
     Dosage: 61 MG, DAILY
     Route: 048
     Dates: start: 20231116
  2. NORVASC [Concomitant]
     Active Substance: AMLODIPINE BESYLATE
     Dosage: TAKE 0.5-1 TABLETS (1.25-2.5 MG TOTAL) BY MOUTH 2 (TWO) TIMES A DAY,1.25 MG AM, 2.5 MG PM
     Route: 048
     Dates: start: 20240313
  3. NEURONTIN [Concomitant]
     Active Substance: GABAPENTIN
     Dosage: 300 MG, 2X/DAY
     Route: 048
     Dates: start: 20240313

REACTIONS (2)
  - Confusional state [Unknown]
  - Product dose omission issue [Unknown]
